FAERS Safety Report 8447986-6 (Version None)
Quarter: 2012Q2

REPORT INFORMATION
  Report Type: 
  Country: None (occurrence: None)
  Receive Date: 20120612
  Receipt Date: 20120601
  Transmission Date: 20120825
  Serious: Yes (Hospitalization, Other)
  Sender: FDA-Public Use
  Company Number: 2012P1031770

PATIENT

DRUGS (3)
  1. ANTI NAUSEA MEDICINES [Concomitant]
  2. CEFAZOLIN [Suspect]
     Indication: INFECTION PROPHYLAXIS
     Dosage: 100 MG, X1, IV
     Route: 042
     Dates: start: 20120427, end: 20120427
  3. EPIDURAL [Concomitant]

REACTIONS (2)
  - MATERNAL DRUGS AFFECTING FOETUS [None]
  - APGAR SCORE LOW [None]
